FAERS Safety Report 7131661-4 (Version None)
Quarter: 2010Q4

REPORT INFORMATION
  Report Type: 
  Country: None (occurrence: None)
  Receive Date: 20101201
  Receipt Date: 20101119
  Transmission Date: 20110411
  Serious: No
  Sender: FDA-Public Use
  Company Number: US-RB-016411-10

PATIENT
  Age: 40 Year
  Sex: Female

DRUGS (2)
  1. SUBOXONE [Suspect]
     Indication: DRUG DEPENDENCE
     Dosage: UNIT DOSE AND FREQUENCY UNKNOWN.
     Route: 060
     Dates: start: 20101001, end: 20101001
  2. LYRICA [Suspect]
     Indication: PRODUCT USED FOR UNKNOWN INDICATION
     Dosage: DOSING DETAILS UNKNOWN.
     Route: 048
     Dates: end: 20101001

REACTIONS (5)
  - FEELING ABNORMAL [None]
  - GAIT DISTURBANCE [None]
  - SPEECH DISORDER [None]
  - VISION BLURRED [None]
  - VOMITING [None]
